FAERS Safety Report 9861807 (Version 1)
Quarter: 2014Q1

REPORT INFORMATION
  Report Type: Spontaneous
  Country: FR (occurrence: FR)
  Receive Date: 20140203
  Receipt Date: 20140203
  Transmission Date: 20141002
  Serious: Yes (Hospitalization)
  Sender: FDA-Public Use
  Company Number: FR-ROCHE-1342576

PATIENT
  Age: 90 Year
  Sex: Female

DRUGS (3)
  1. ROCEPHINE [Suspect]
     Indication: PNEUMONIA
     Route: 065
     Dates: start: 20130316, end: 20130326
  2. ROCEPHINE [Suspect]
     Indication: URINARY TRACT INFECTION
  3. SEROPLEX [Suspect]
     Indication: DEPRESSION
     Dosage: COATED-FILM TABLET
     Route: 048
     Dates: start: 20130312, end: 20130326

REACTIONS (1)
  - Hyponatraemia [Recovered/Resolved]
